FAERS Safety Report 7732807-7 (Version None)
Quarter: 2011Q3

REPORT INFORMATION
  Report Type: 
  Country: None (occurrence: None)
  Receive Date: 20110902
  Receipt Date: 20110902
  Transmission Date: 20111222
  Serious: Yes (Other)
  Sender: FDA-Public Use
  Company Number: None

PATIENT
  Sex: Female
  Weight: 72.5755 kg

DRUGS (1)
  1. SEROQUEL [Suspect]
     Indication: BIPOLAR DISORDER
     Dosage: SEROQUEL QD ORAL 1 X IN SUMMER 2008
     Route: 048

REACTIONS (4)
  - GAIT DISTURBANCE [None]
  - IMPAIRED WORK ABILITY [None]
  - SOMNOLENCE [None]
  - FEAR [None]
